FAERS Safety Report 6680316-9 (Version None)
Quarter: 2010Q2

REPORT INFORMATION
  Report Type: 
  Country: None (occurrence: None)
  Receive Date: 20100412
  Receipt Date: 20100329
  Transmission Date: 20101027
  Serious: Yes (Other)
  Sender: FDA-Public Use
  Company Number: 234909K08USA

PATIENT
  Age: 33 Year
  Sex: Male
  Weight: 103 kg

DRUGS (1)
  1. REBIF [Suspect]
     Indication: MULTIPLE SCLEROSIS
     Dosage: 44 MCG, 3 IN 1 WK, SUBCUTANEOUS
     Route: 058
     Dates: start: 20081208

REACTIONS (6)
  - CONDITION AGGRAVATED [None]
  - CONVULSION [None]
  - STRESS [None]
  - TONGUE BITING [None]
  - TONGUE HAEMORRHAGE [None]
  - TONGUE INJURY [None]
